FAERS Safety Report 5619152-0 (Version None)
Quarter: 2008Q1

REPORT INFORMATION
  Report Type: 
  Country: None (occurrence: None)
  Receive Date: 20080205
  Receipt Date: 20080128
  Transmission Date: 20080703
  Serious: Yes (Other)
  Sender: FDA-Public Use
  Company Number: 023260

PATIENT
  Age: 16 Year
  Sex: Male

DRUGS (2)
  1. CLARAVIS [Suspect]
     Indication: ACNE
     Dosage: ORAL; 30 MG, BID, ORAL
     Route: 048
     Dates: start: 20071128, end: 20071227
  2. CLARAVIS [Suspect]
     Indication: ACNE
     Dosage: ORAL; 30 MG, BID, ORAL
     Route: 048
     Dates: start: 20071228, end: 20080125

REACTIONS (2)
  - DEPRESSION [None]
  - SUICIDAL IDEATION [None]
